FAERS Safety Report 18707528 (Version 1)
Quarter: 2021Q1

REPORT INFORMATION
  Report Type: Spontaneous
  Country: US (occurrence: US)
  Receive Date: 20210106
  Receipt Date: 20210106
  Transmission Date: 20210419
  Serious: Yes (Hospitalization)
  Sender: FDA-Public Use
  Company Number: None

PATIENT
  Age: 77 Year
  Sex: Male
  Weight: 90.4 kg

DRUGS (21)
  1. PANTOPRAZOLE [Concomitant]
     Active Substance: PANTOPRAZOLE
     Dates: start: 20201223
  2. MONTELUKAST [Concomitant]
     Active Substance: MONTELUKAST SODIUM
  3. ALBUTEROL INHALATION [Concomitant]
     Active Substance: ALBUTEROL
  4. MIRALAX [Concomitant]
     Active Substance: POLYETHYLENE GLYCOL 3350
  5. LOSARTAN. [Concomitant]
     Active Substance: LOSARTAN
  6. TRAZODONE [Concomitant]
     Active Substance: TRAZODONE HYDROCHLORIDE
  7. MAGNESIUM [Concomitant]
     Active Substance: MAGNESIUM
  8. FAMOTIDINE. [Concomitant]
     Active Substance: FAMOTIDINE
  9. DICLOFENAC GEL [Concomitant]
     Active Substance: DICLOFENAC
  10. MVI [Concomitant]
     Active Substance: VITAMINS
  11. DOCUSATE [Concomitant]
     Active Substance: DOCUSATE
  12. ASPIRIN. [Concomitant]
     Active Substance: ASPIRIN
  13. SPIRIVA [Concomitant]
     Active Substance: TIOTROPIUM BROMIDE MONOHYDRATE
  14. DILTIAZEM. [Concomitant]
     Active Substance: DILTIAZEM
  15. IRON [Concomitant]
     Active Substance: IRON
  16. BAMLANIVIMAB. [Suspect]
     Active Substance: BAMLANIVIMAB
     Indication: COVID-19
     Dosage: ?          OTHER FREQUENCY:ONCE;?
     Route: 042
     Dates: start: 20201216, end: 20201216
  17. CETIRIZINE [Concomitant]
     Active Substance: CETIRIZINE HYDROCHLORIDE
  18. CALCITRIOL. [Concomitant]
     Active Substance: CALCITRIOL
  19. IBUPROFEN. [Concomitant]
     Active Substance: IBUPROFEN
  20. VITAMIN D3 [Concomitant]
     Active Substance: CHOLECALCIFEROL
  21. GUAIFENESIN. [Concomitant]
     Active Substance: GUAIFENESIN

REACTIONS (7)
  - Melaena [None]
  - Nausea [None]
  - Haematocrit decreased [None]
  - Abdominal discomfort [None]
  - Haemoglobin decreased [None]
  - Dizziness [None]
  - Abdominal pain [None]

NARRATIVE: CASE EVENT DATE: 20201223
